FAERS Safety Report 5715308-7 (Version None)
Quarter: 2008Q2

REPORT INFORMATION
  Report Type: 
  Country: None (occurrence: None)
  Receive Date: 20080423
  Receipt Date: 20080411
  Transmission Date: 20081010
  Serious: Yes (Other)
  Sender: FDA-Public Use
  Company Number: CA-PFIZER INC-2008028992

PATIENT
  Age: 58 Year
  Sex: Female

DRUGS (6)
  1. CHAMPIX [Suspect]
     Route: 048
  2. CRESTOR [Concomitant]
  3. EFFEXOR XR [Concomitant]
  4. ELTROXIN [Concomitant]
  5. RABEPRAZOLE SODIUM [Concomitant]
  6. TOPIRAMATE [Concomitant]

REACTIONS (10)
  - ABNORMAL DREAMS [None]
  - ANGER [None]
  - ANXIETY [None]
  - CONVERSION DISORDER [None]
  - CRYING [None]
  - DEPRESSION [None]
  - LETHARGY [None]
  - MENTAL DISORDER [None]
  - SOMNOLENCE [None]
  - SUICIDAL IDEATION [None]
